FAERS Safety Report 15834258 (Version 1)
Quarter: 2019Q1

REPORT INFORMATION
  Report Type: Spontaneous
  Country: US (occurrence: US)
  Receive Date: 20190116
  Receipt Date: 20190116
  Transmission Date: 20190417
  Serious: Yes (Other)
  Sender: FDA-Public Use
  Company Number: US-MATRIXX INITIATIVES, INC.-2061265

PATIENT
  Age: 32 Year
  Sex: Female
  Weight: 63.64 kg

DRUGS (3)
  1. UNSPECIFIED PRE-NATAL VITAMINS [Concomitant]
  2. ZICAM COLD REMEDY RAPIDMELTS [Suspect]
     Active Substance: HOMEOPATHICS\ZINC ACETATE ANHYDROUS\ZINC GLUCONATE
     Indication: NASOPHARYNGITIS
     Route: 048
     Dates: start: 20190114, end: 20190114
  3. EMERGEN-C [Suspect]
     Active Substance: VITAMINS

REACTIONS (3)
  - Muscular weakness [Recovered/Resolved]
  - Hallucination [Recovered/Resolved]
  - Flushing [Recovered/Resolved]
